FAERS Safety Report 7120822-6 (Version None)
Quarter: 2010Q4

REPORT INFORMATION
  Report Type: 
  Country: None (occurrence: None)
  Receive Date: 20101119
  Receipt Date: 20101119
  Transmission Date: 20110411
  Serious: No
  Sender: FDA-Public Use
  Company Number: None

PATIENT
  Age: 41 Year
  Sex: Male
  Weight: 69.4003 kg

DRUGS (2)
  1. VENLAFAXINE [Suspect]
     Indication: MAJOR DEPRESSION
     Dosage: 75MG Q12 PO
     Route: 048
     Dates: start: 20101026, end: 20101101
  2. TRIZIVIR [Concomitant]

REACTIONS (1)
  - BLOOD PRESSURE INCREASED [None]
